FAERS Safety Report 4603812-4 (Version None)
Quarter: 2005Q1

REPORT INFORMATION
  Report Type: 
  Country: None (occurrence: None)
  Receive Date: 20050310
  Receipt Date: 20041215
  Transmission Date: 20050727
  Serious: Yes (Hospitalization, Disabling)
  Sender: FDA-Public Use
  Company Number: AU-MERCK-0412AUS00136

PATIENT
  Age: 39 Year
  Sex: Female

DRUGS (4)
  1. VIOXX [Suspect]
     Route: 048
     Dates: start: 20030101, end: 20040501
  2. INSULIN [Concomitant]
     Route: 065
  3. VIOXX [Suspect]
     Route: 048
     Dates: start: 20010801
  4. METFORMIN HYDROCHLORIDE [Concomitant]
     Route: 065

REACTIONS (3)
  - ATRIOVENTRICULAR BLOCK [None]
  - CARDIAC DISORDER [None]
  - MYOCARDIAL INFARCTION [None]
